FAERS Safety Report 23196892 (Version 1)
Quarter: 2023Q4

REPORT INFORMATION
  Report Type: Spontaneous
  Country: US (occurrence: None)
  Receive Date: 20231117
  Receipt Date: 20231117
  Transmission Date: 20240110
  Serious: No
  Sender: FDA-Public Use
  Company Number: 2023A253536

PATIENT
  Sex: Female
  Weight: 49.9 kg

DRUGS (2)
  1. BRILINTA [Suspect]
     Active Substance: TICAGRELOR
     Route: 048
     Dates: start: 20230930
  2. UNSPECIFIED INGREDIENT [Concomitant]
     Active Substance: UNSPECIFIED INGREDIENT

REACTIONS (6)
  - Hyperhidrosis [Unknown]
  - Peripheral coldness [Unknown]
  - Headache [Unknown]
  - Osteoarthritis [Unknown]
  - Pruritus [Unknown]
  - Contusion [Unknown]
